FAERS Safety Report 6158552-X (Version None)
Quarter: 2009Q2

REPORT INFORMATION
  Report Type: 
  Country: None (occurrence: None)
  Receive Date: 20090408
  Receipt Date: 20090121
  Transmission Date: 20091009
  Serious: Yes (Death)
  Sender: FDA-Public Use
  Company Number: BMS-LI-2009-0023-V001

PATIENT
  Age: 53 Year
  Sex: Female

DRUGS (1)
  1. TRAZODONE HYDROCHLORIDE [Suspect]

REACTIONS (1)
  - CARDIO-RESPIRATORY ARREST [None]
